FAERS Safety Report 7036285-5 (Version None)
Quarter: 2010Q4

REPORT INFORMATION
  Report Type: 
  Country: None (occurrence: None)
  Receive Date: 20101008
  Receipt Date: 20100930
  Transmission Date: 20110411
  Serious: Yes (Hospitalization, Other)
  Sender: FDA-Public Use
  Company Number: US-AMGEN-KDL443104

PATIENT
  Sex: Female

DRUGS (3)
  1. PROCRIT [Suspect]
     Indication: ANAEMIA
     Dates: start: 20090501
  2. LASIX [Concomitant]
  3. POTASSIUM [Concomitant]

REACTIONS (13)
  - CARDIAC FAILURE [None]
  - DIABETES MELLITUS [None]
  - GAIT DISTURBANCE [None]
  - HAEMATOCHEZIA [None]
  - HEPATIC FAILURE [None]
  - HERPES ZOSTER [None]
  - HYPERTENSION [None]
  - INFECTION [None]
  - ORGAN FAILURE [None]
  - PYREXIA [None]
  - RENAL FAILURE [None]
  - SEPTIC SHOCK [None]
  - THROMBOSIS [None]
